FAERS Safety Report 6804534-1 (Version None)
Quarter: 2010Q2

REPORT INFORMATION
  Report Type: 
  Country: None (occurrence: None)
  Receive Date: 20100628
  Receipt Date: 20100624
  Transmission Date: 20101027
  Serious: Yes (Other)
  Sender: FDA-Public Use
  Company Number: US-MERCK-1001USA01548

PATIENT
  Age: 80 Year
  Sex: Female
  Weight: 68 kg

DRUGS (5)
  1. FOSAMAX PLUS D [Suspect]
     Indication: OSTEOPENIA
     Route: 048
     Dates: start: 20061001, end: 20090301
  2. FOSAMAX PLUS D [Suspect]
     Indication: OSTEOPOROSIS
     Route: 048
     Dates: start: 20061001, end: 20090301
  3. CALCIUM (UNSPECIFIED) [Concomitant]
     Route: 065
  4. VITAMIN D (UNSPECIFIED) [Concomitant]
     Route: 065
  5. LIDODERM [Concomitant]
     Indication: PAIN
     Route: 061

REACTIONS (20)
  - ARTHROPATHY [None]
  - BODY HEIGHT DECREASED [None]
  - BURSITIS [None]
  - CONTUSION [None]
  - DRUG INEFFECTIVE [None]
  - DRUG INTOLERANCE [None]
  - FALL [None]
  - GASTROINTESTINAL DISORDER [None]
  - HYPERTENSION [None]
  - IMPAIRED HEALING [None]
  - JOINT INJURY [None]
  - MUSCULOSKELETAL PAIN [None]
  - ORAL DISORDER [None]
  - OSTEOARTHRITIS [None]
  - OSTEONECROSIS OF JAW [None]
  - PAIN IN JAW [None]
  - STOMATITIS [None]
  - TENDONITIS [None]
  - TOOTH DISORDER [None]
  - UTERINE DISORDER [None]
